FAERS Safety Report 5018406-9 (Version None)
Quarter: 2006Q2

REPORT INFORMATION
  Report Type: 
  Country: None (occurrence: None)
  Receive Date: 20060530
  Receipt Date: 20060517
  Transmission Date: 20061013
  Serious: Yes (Hospitalization)
  Sender: FDA-Public Use
  Company Number: 163-C5013-06050515

PATIENT
  Age: 51 Year
  Sex: Female
  Weight: 63.9572 kg

DRUGS (4)
  1. REVLIMID [Suspect]
     Indication: MULTIPLE MYELOMA
     Dosage: 25 MG, DAILY X21D, ORAL
     Route: 048
     Dates: start: 20060216, end: 20060505
  2. DEXAMETHASONE [Suspect]
     Indication: MULTIPLE MYELOMA
     Dosage: 40 MG, DAILY X4D, ORAL
     Route: 048
     Dates: start: 20060216, end: 20060505
  3. DOXIL [Concomitant]
  4. VINCRISTINE [Concomitant]

REACTIONS (10)
  - BODY TEMPERATURE INCREASED [None]
  - DEHYDRATION [None]
  - DISEASE PROGRESSION [None]
  - HAEMATOCRIT DECREASED [None]
  - HAEMOGLOBIN DECREASED [None]
  - LETHARGY [None]
  - MENTAL STATUS CHANGES [None]
  - MULTIPLE MYELOMA [None]
  - NEUROPATHY PERIPHERAL [None]
  - PLATELET COUNT DECREASED [None]
